FAERS Safety Report 6985081-3 (Version None)
Quarter: 2010Q3

REPORT INFORMATION
  Report Type: 
  Country: None (occurrence: None)
  Receive Date: 20100915
  Receipt Date: 20100907
  Transmission Date: 20110219
  Serious: Yes (Other)
  Sender: FDA-Public Use
  Company Number: PHHY2010JP52828

PATIENT
  Age: 64 Year
  Sex: Male

DRUGS (3)
  1. PARLODEL [Suspect]
     Dosage: 2.5 MG DAILY
     Route: 048
  2. ARTANE [Concomitant]
     Dosage: 12 MG
     Route: 048
  3. LANDSEN [Concomitant]
     Dosage: UNK
     Route: 048

REACTIONS (1)
  - HYPOGLYCAEMIA [None]
